FAERS Safety Report 9284787 (Version 1)
Quarter: 2013Q2

REPORT INFORMATION
  Report Type: Report from Study
  Country: FR (occurrence: FR)
  Receive Date: 20130513
  Receipt Date: 20130513
  Transmission Date: 20140414
  Serious: Yes (Life-Threatening)
  Sender: FDA-Public Use
  Company Number: FR-ROCHE-1221121

PATIENT
  Age: 85 Year
  Sex: Female
  Weight: 67 kg

DRUGS (5)
  1. RITUXIMAB [Suspect]
     Indication: PEMPHIGOID
     Route: 042
     Dates: start: 20110328, end: 20110328
  2. LASILIX [Concomitant]
     Route: 048
  3. APROVEL [Concomitant]
     Route: 048
  4. HYDROCORTISONE [Concomitant]
     Route: 048
  5. DERMOVAL (FRANCE) [Concomitant]
     Route: 061

REACTIONS (4)
  - Nervous system disorder [Recovered/Resolved with Sequelae]
  - Cerebral haemorrhage [Recovered/Resolved with Sequelae]
  - Haemorrhagic stroke [Unknown]
  - Hypertension [Unknown]
